FAERS Safety Report 5589457-0 (Version None)
Quarter: 2008Q1

REPORT INFORMATION
  Report Type: 
  Country: None (occurrence: None)
  Receive Date: 20080110
  Receipt Date: 20080110
  Transmission Date: 20080703
  Serious: Yes (Other)
  Sender: FDA-Public Use
  Company Number: None

PATIENT
  Age: 55 Year
  Sex: Female
  Weight: 72.5755 kg

DRUGS (2)
  1. FACTIVE [Suspect]
     Indication: BRONCHITIS
  2. FACTIVE [Suspect]
     Indication: SINUSITIS

REACTIONS (1)
  - RASH [None]
